FAERS Safety Report 24055273 (Version 2)
Quarter: 2024Q3

REPORT INFORMATION
  Report Type: Report from Study
  Country: US (occurrence: US)
  Receive Date: 20240705
  Receipt Date: 20240805
  Transmission Date: 20241016
  Serious: Yes (Other)
  Sender: ROCHE
  Company Number: US-ROCHE-3527511

PATIENT
  Sex: Female

DRUGS (1)
  1. XOLAIR [Suspect]
     Active Substance: OMALIZUMAB
     Indication: Urticaria
     Route: 065
     Dates: start: 201912

REACTIONS (5)
  - Angioedema [Unknown]
  - Urticaria [Unknown]
  - Pruritus [Unknown]
  - Paraesthesia [Unknown]
  - Autoimmune disorder [Unknown]
